FAERS Safety Report 5707710-4 (Version None)
Quarter: 2008Q2

REPORT INFORMATION
  Report Type: 
  Country: None (occurrence: None)
  Receive Date: 20080417
  Receipt Date: 20080407
  Transmission Date: 20081010
  Serious: Yes (Death)
  Sender: FDA-Public Use
  Company Number: US-SP-2008-01002

PATIENT
  Age: 84 Year
  Sex: Female

DRUGS (2)
  1. BOTULISM AB [Suspect]
     Indication: BOTULISM
     Route: 042
     Dates: start: 20050621
  2. BOTULISM ANTITOXIN ABE [Suspect]
     Indication: BOTULISM
     Route: 042
     Dates: start: 20050621

REACTIONS (2)
  - BRADYCARDIA [None]
  - HYPOTENSION [None]
